APPROVED DRUG PRODUCT: TENCON
Active Ingredient: ACETAMINOPHEN; BUTALBITAL
Strength: 650MG;50MG
Dosage Form/Route: CAPSULE;ORAL
Application: A089405 | Product #001
Applicant: MALLINCKRODT CHEMICAL INC
Approved: May 15, 1990 | RLD: No | RS: No | Type: DISCN